FAERS Safety Report 25248344 (Version 2)
Quarter: 2025Q2

REPORT INFORMATION
  Report Type: Report from Study
  Country: US (occurrence: US)
  Receive Date: 20250429
  Receipt Date: 20250602
  Transmission Date: 20250716
  Serious: Yes (Other)
  Sender: ALEXION PHARMACEUTICALS
  Company Number: US-AstraZeneca-CH-00854232A

PATIENT

DRUGS (1)
  1. SOLIRIS [Suspect]
     Active Substance: ECULIZUMAB
     Indication: Paroxysmal nocturnal haemoglobinuria
     Route: 065

REACTIONS (11)
  - Bell^s palsy [Recovered/Resolved]
  - Urticaria [Unknown]
  - Chest discomfort [Recovered/Resolved]
  - Pain in extremity [Unknown]
  - Muscle fatigue [Unknown]
  - Headache [Unknown]
  - Feeling abnormal [Unknown]
  - Insurance issue [Unknown]
  - Peripheral swelling [Unknown]
  - Muscle disorder [Unknown]
  - Hypertension [Unknown]
